FAERS Safety Report 16861376 (Version 1)
Quarter: 2019Q3

REPORT INFORMATION
  Report Type: Spontaneous
  Country: ID (occurrence: ID)
  Receive Date: 20190927
  Receipt Date: 20190927
  Transmission Date: 20191005
  Serious: Yes (Other)
  Sender: FDA-Public Use
  Company Number: PHHY2019ID220891

PATIENT
  Age: 38 Year
  Sex: Female

DRUGS (1)
  1. METHYLPREDNISOLONE. [Suspect]
     Active Substance: METHYLPREDNISOLONE
     Indication: PRODUCT USED FOR UNKNOWN INDICATION
     Dosage: 16 MG, TID
     Route: 065

REACTIONS (7)
  - Back pain [Recovered/Resolved]
  - Movement disorder [Recovered/Resolved]
  - Rash pustular [Recovered/Resolved]
  - Infection [Recovered/Resolved]
  - Acarodermatitis [Recovered/Resolved]
  - Skin hyperpigmentation [Recovered/Resolved]
  - Papule [Recovered/Resolved]
